FAERS Safety Report 18163578 (Version 5)
Quarter: 2020Q4

REPORT INFORMATION
  Report Type: Spontaneous
  Country: US (occurrence: US)
  Receive Date: 20200818
  Receipt Date: 20201009
  Transmission Date: 20210113
  Serious: Yes (Hospitalization, Other)
  Sender: FDA-Public Use
  Company Number: US-LEXICON PHARMACEUTICALS, INC-20-1606-00653

PATIENT
  Age: 73 Year
  Sex: Female

DRUGS (4)
  1. ENSURE [Concomitant]
     Active Substance: AMINO ACIDS\DEXTROSE\ELECTROLYTES NOS\SOYBEAN OIL\VITAMINS
  2. XERMELO [Suspect]
     Active Substance: TELOTRISTAT ETHYL
     Indication: CARCINOID TUMOUR OF THE SMALL BOWEL
     Dates: start: 20200717
  3. ANTIBIOTICS [Suspect]
     Active Substance: UNSPECIFIED INGREDIENT
  4. SANDOSTATIN [Concomitant]
     Active Substance: OCTREOTIDE ACETATE

REACTIONS (12)
  - Cholecystitis infective [Unknown]
  - Hospitalisation [Unknown]
  - Dry skin [Unknown]
  - Constipation [Unknown]
  - Treatment noncompliance [Recovered/Resolved]
  - Diarrhoea [Unknown]
  - Vomiting [Recovering/Resolving]
  - Drug ineffective [Unknown]
  - Decreased appetite [Unknown]
  - Bedridden [Unknown]
  - Pain [Unknown]
  - Lacrimation increased [Unknown]

NARRATIVE: CASE EVENT DATE: 202009
